FAERS Safety Report 5821572-6 (Version None)
Quarter: 2008Q3

REPORT INFORMATION
  Report Type: 
  Country: None (occurrence: None)
  Receive Date: 20080724
  Receipt Date: 20080717
  Transmission Date: 20090109
  Serious: Yes (Other)
  Sender: FDA-Public Use
  Company Number: PHHY2008CA14532

PATIENT

DRUGS (2)
  1. ZOLEDRONIC ACID [Suspect]
     Indication: OSTEITIS DEFORMANS
     Dosage: UNK
     Dates: start: 20080604
  2. LASIX [Concomitant]

REACTIONS (6)
  - BONE PAIN [None]
  - DIZZINESS [None]
  - FEELING ABNORMAL [None]
  - OEDEMA PERIPHERAL [None]
  - SWELLING [None]
  - SYNCOPE VASOVAGAL [None]
